FAERS Safety Report 6300394-6 (Version None)
Quarter: 2009Q3

REPORT INFORMATION
  Report Type: 
  Country: None (occurrence: None)
  Receive Date: 20090803
  Receipt Date: 20090722
  Transmission Date: 20100115
  Serious: Yes (Hospitalization)
  Sender: FDA-Public Use
  Company Number: 8043362

PATIENT
  Age: 76 Year
  Sex: Male

DRUGS (3)
  1. XYZAL [Suspect]
     Indication: PRURITUS
     Dosage: 5 MG ONCE PO
     Route: 048
     Dates: end: 20090213
  2. RENITEC [Concomitant]
  3. LEVOTHYROX [Concomitant]

REACTIONS (2)
  - LOSS OF CONSCIOUSNESS [None]
  - ROAD TRAFFIC ACCIDENT [None]
